FAERS Safety Report 8910152 (Version 1)
Quarter: 2012Q4

REPORT INFORMATION
  Report Type: 
  Country: FR (occurrence: FR)
  Receive Date: 20121114
  Receipt Date: 20121114
  Transmission Date: 20130627
  Serious: Yes (Hospitalization)
  Sender: FDA-Public Use
  Company Number: FR-BAXTER-2012BAX023073

PATIENT
  Age: 63 Year
  Sex: Male

DRUGS (15)
  1. ENDOXAN 2000 MG, LYOPHILISAT POUR SOLUTION INJECTABLE [Suspect]
     Indication: CHRONIC LYMPHOID LEUKEMIA
     Route: 042
     Dates: start: 20120927, end: 20120927
  2. MABTHERA [Suspect]
     Indication: CHRONIC LYMPHOID LEUKEMIA
     Route: 042
     Dates: start: 20120927, end: 20120927
  3. ELDISINE [Suspect]
     Indication: CHRONIC LYMPHOID LEUKEMIA
     Route: 042
     Dates: start: 20120927, end: 20120927
  4. ADRIBLASTINE [Suspect]
     Indication: CHRONIC LYMPHOID LEUKEMIA
     Route: 042
     Dates: start: 20120927, end: 20120927
  5. SOLUPRED [Concomitant]
     Indication: CHRONIC LYMPHOID LEUKEMIA
     Route: 048
     Dates: start: 20120927, end: 20121001
  6. MEDROL [Concomitant]
     Indication: DRUG USE FOR UNKNOWN INDICATION
     Route: 042
     Dates: start: 20120927, end: 20120927
  7. SERESTA 50 [Concomitant]
     Indication: DRUG USE FOR UNKNOWN INDICATION
     Route: 065
  8. OROCAL [Concomitant]
     Indication: DRUG USE FOR UNKNOWN INDICATION
     Route: 065
  9. IMOVANE [Concomitant]
     Indication: DRUG USE FOR UNKNOWN INDICATION
     Route: 065
  10. PARIET [Concomitant]
     Indication: DRUG USE FOR UNKNOWN INDICATION
     Route: 065
  11. SECTRAL [Concomitant]
     Indication: DRUG USE FOR UNKNOWN INDICATION
     Route: 065
  12. TAHOR [Concomitant]
     Indication: DRUG USE FOR UNKNOWN INDICATION
     Route: 065
  13. TRAMADOL [Concomitant]
     Indication: DRUG USE FOR UNKNOWN INDICATION
     Route: 065
  14. DIFFU-K [Concomitant]
     Indication: DRUG USE FOR UNKNOWN INDICATION
     Route: 065
  15. TRANSIPEG [Concomitant]
     Indication: DRUG USE FOR UNKNOWN INDICATION
     Route: 065

REACTIONS (2)
  - Febrile bone marrow aplasia [Recovered/Resolved]
  - Staphylococcal sepsis [Recovered/Resolved]
